FAERS Safety Report 10742760 (Version 3)
Quarter: 2015Q2

REPORT INFORMATION
  Report Type: Spontaneous
  Country: US (occurrence: US)
  Receive Date: 20150127
  Receipt Date: 20150520
  Transmission Date: 20150821
  Serious: No
  Sender: FDA-Public Use
  Company Number: US-009507513-1204USA02818

PATIENT
  Sex: Male

DRUGS (1)
  1. PROPECIA [Suspect]
     Active Substance: FINASTERIDE
     Indication: ALOPECIA
     Dosage: 1 MG, UNK
     Route: 048
     Dates: start: 20061102, end: 20080314

REACTIONS (14)
  - Cognitive disorder [Not Recovered/Not Resolved]
  - Depression [Unknown]
  - Anxiety [Unknown]
  - Loss of libido [Unknown]
  - Depressed mood [Unknown]
  - Testicular failure [Unknown]
  - Fatigue [Unknown]
  - Insomnia [Unknown]
  - Metabolic syndrome [Unknown]
  - Irritability [Unknown]
  - Weight increased [Unknown]
  - Hypogonadism [Unknown]
  - Sexual dysfunction [Not Recovered/Not Resolved]
  - Erectile dysfunction [Unknown]

NARRATIVE: CASE EVENT DATE: 2007
